FAERS Safety Report 22353145 (Version 1)
Quarter: 2023Q2

REPORT INFORMATION
  Report Type: Spontaneous
  Country: US (occurrence: US)
  Receive Date: 20230523
  Receipt Date: 20230523
  Transmission Date: 20230722
  Serious: No
  Sender: FDA-Public Use
  Company Number: US-009507513-2305USA000212

PATIENT

DRUGS (1)
  1. STERILE DILUENT (WATER) [Suspect]
     Active Substance: WATER
     Indication: Medication dilution
     Dosage: 1 DOSAGE FORM, ONCE
     Dates: start: 20230427

REACTIONS (2)
  - Expired product administered [Unknown]
  - No adverse event [Unknown]

NARRATIVE: CASE EVENT DATE: 20230427
